FAERS Safety Report 9406069 (Version 1)
Quarter: 2013Q3

REPORT INFORMATION
  Report Type: Spontaneous
  Country: US (occurrence: US)
  Receive Date: 20130717
  Receipt Date: 20130717
  Transmission Date: 20140515
  Serious: Yes (Hospitalization, Disabling, Other)
  Sender: FDA-Public Use
  Company Number: US-009507513-0811USA03807

PATIENT
  Sex: Female

DRUGS (4)
  1. FOSAMAX [Suspect]
     Indication: OSTEOPOROSIS
     Dosage: 70  MG, UNK
     Route: 048
     Dates: start: 200109, end: 200704
  2. FOSAMAX [Suspect]
     Dosage: 70 MG, QW
     Route: 048
     Dates: start: 20020916
  3. DOXEPIN BETA [Concomitant]
     Indication: DEPRESSION
     Dates: start: 1995
  4. CITALOPRAM HYDROBROMIDE [Concomitant]
     Indication: DEPRESSION
     Dates: start: 1995

REACTIONS (37)
  - Jaw disorder [Unknown]
  - Jaw fracture [Unknown]
  - Device breakage [Unknown]
  - Gallbladder disorder [Unknown]
  - Hypoaesthesia oral [Not Recovered/Not Resolved]
  - Myocardial infarction [Unknown]
  - Pathological fracture [Unknown]
  - Osteonecrosis of jaw [Not Recovered/Not Resolved]
  - Osteomyelitis [Not Recovered/Not Resolved]
  - Device breakage [Unknown]
  - Cervical polyp [Unknown]
  - Large intestine polyp [Unknown]
  - Depression [Not Recovered/Not Resolved]
  - Gingival bleeding [Unknown]
  - Bronchitis [Unknown]
  - Abscess [Unknown]
  - Hyperlipidaemia [Unknown]
  - Hypoaesthesia [Unknown]
  - Induration [Unknown]
  - Diabetic neuropathy [Not Recovered/Not Resolved]
  - Dysthymic disorder [Not Recovered/Not Resolved]
  - Hypercholesterolaemia [Not Recovered/Not Resolved]
  - Insomnia [Recovering/Resolving]
  - Gingival recession [Unknown]
  - Dental caries [Unknown]
  - Dry mouth [Unknown]
  - Type 2 diabetes mellitus [Not Recovered/Not Resolved]
  - Temporomandibular joint syndrome [Unknown]
  - Mental disorder [Not Recovered/Not Resolved]
  - Adverse drug reaction [Unknown]
  - Tooth disorder [Unknown]
  - Pain in extremity [Recovering/Resolving]
  - Pain in extremity [Unknown]
  - Drug hypersensitivity [Not Recovered/Not Resolved]
  - Drug ineffective [Unknown]
  - Tongue ulceration [Unknown]
  - Pruritus [Unknown]
